FAERS Safety Report 6194442-4 (Version None)
Quarter: 2009Q2

REPORT INFORMATION
  Report Type: 
  Country: None (occurrence: None)
  Receive Date: 20090515
  Receipt Date: 20090506
  Transmission Date: 20091009
  Serious: Yes (Other)
  Sender: FDA-Public Use
  Company Number: GXKR2009CO05502

PATIENT
  Age: 66 Year
  Sex: Female

DRUGS (2)
  1. CURAM (NGX) (AMOXICILLIN, CLAVULANATE) UNKNOWN [Suspect]
     Indication: SINUSITIS
     Dosage: 1000 MG, DAILY, ORAL
     Route: 048
     Dates: start: 20090401
  2. PIROXIN (PRIOXICAM) [Concomitant]

REACTIONS (3)
  - AMNESIA [None]
  - GAIT DISTURBANCE [None]
  - SLEEP DISORDER [None]
